FAERS Safety Report 4465290-8 (Version None)
Quarter: 2004Q4

REPORT INFORMATION
  Report Type: 
  Country: None (occurrence: None)
  Receive Date: 20041004
  Receipt Date: 20040826
  Transmission Date: 20050328
  Serious: Yes (Other)
  Sender: FDA-Public Use
  Company Number: GB-MERCK-0408GBR00255

PATIENT
  Age: 84 Year
  Sex: Male
  Weight: 74 kg

DRUGS (7)
  1. AMLODIPINE BESYLATE [Concomitant]
     Indication: HYPERTENSION
     Route: 065
  2. BENDROFLUMETHIAZIDE [Concomitant]
     Indication: TRANSIENT ISCHAEMIC ATTACK
     Route: 065
  3. DIPYRIDAMOLE [Concomitant]
     Route: 065
  4. DOTHIEPIN HYDROCHLORIDE [Concomitant]
     Route: 065
  5. GLICLAZIDE [Concomitant]
     Indication: DIABETES MELLITUS
     Route: 065
  6. ROSIGLITAZONE MALEATE [Concomitant]
     Indication: DIABETES MELLITUS
     Route: 065
  7. ZOCOR [Suspect]
     Indication: BLOOD CHOLESTEROL INCREASED
     Route: 048
     Dates: start: 20040501, end: 20040804

REACTIONS (4)
  - ALOPECIA [None]
  - BLOOD CREATINE PHOSPHOKINASE INCREASED [None]
  - GAIT DISTURBANCE [None]
  - MYALGIA [None]
